FAERS Safety Report 6123837-X (Version None)
Quarter: 2009Q1

REPORT INFORMATION
  Report Type: 
  Country: None (occurrence: None)
  Receive Date: 20090317
  Receipt Date: 20090317
  Transmission Date: 20090719
  Serious: Yes (Life-Threatening)
  Sender: FDA-Public Use
  Company Number: None

PATIENT
  Sex: Female

DRUGS (1)
  1. CARVEDILOL [Suspect]
     Indication: CARDIAC FAILURE
     Dosage: 25MG TWICE A DAY PO
     Route: 048
     Dates: start: 20090101, end: 20090301

REACTIONS (5)
  - CHEST PAIN [None]
  - DYSPNOEA [None]
  - FATIGUE [None]
  - PRODUCT QUALITY ISSUE [None]
  - SWELLING [None]
